FAERS Safety Report 4602863-3 (Version None)
Quarter: 2005Q1

REPORT INFORMATION
  Report Type: 
  Country: None (occurrence: None)
  Receive Date: 20050309
  Receipt Date: 20050224
  Transmission Date: 20050727
  Serious: Yes (Hospitalization)
  Sender: FDA-Public Use
  Company Number: US-GLAXOSMITHKLINE-A0547175A

PATIENT
  Age: 2 Year
  Sex: Female

DRUGS (4)
  1. FLOVENT [Suspect]
     Indication: ASTHMA
     Dosage: 2PUFF PER DAY
     Route: 055
     Dates: start: 20050118
  2. CARAFATE [Concomitant]
  3. ZANTAC [Concomitant]
  4. LACTULOSE [Concomitant]

REACTIONS (5)
  - BLOOD ELECTROLYTES DECREASED [None]
  - DIARRHOEA [None]
  - GASTROENTERITIS VIRAL [None]
  - LABORATORY TEST ABNORMAL [None]
  - WEIGHT DECREASED [None]
